FAERS Safety Report 24743340 (Version 1)
Quarter: 2024Q4

REPORT INFORMATION
  Report Type: Report from Study
  Country: CO (occurrence: CO)
  Receive Date: 20241217
  Receipt Date: 20241217
  Transmission Date: 20250114
  Serious: Yes (Hospitalization, Other)
  Sender: HELSINN HEALTHCARE
  Company Number: CO-HBP-2023CO029056

PATIENT
  Age: 53 Year
  Sex: Female
  Weight: 85 kg

DRUGS (8)
  1. MECHLORETHAMINE HYDROCHLORIDE [Suspect]
     Active Substance: MECHLORETHAMINE HYDROCHLORIDE
     Indication: Cutaneous T-cell lymphoma
     Dosage: UNK, QD AT NIGHT
     Route: 061
     Dates: start: 20230525, end: 2024
  2. MECHLORETHAMINE HYDROCHLORIDE [Suspect]
     Active Substance: MECHLORETHAMINE HYDROCHLORIDE
     Dosage: UNK, QD AT NIGHT
     Route: 061
     Dates: start: 2024
  3. MECHLORETHAMINE HYDROCHLORIDE [Suspect]
     Active Substance: MECHLORETHAMINE HYDROCHLORIDE
     Dosage: UNK, QD
     Route: 061
     Dates: end: 20241107
  4. MECHLORETHAMINE HYDROCHLORIDE [Suspect]
     Active Substance: MECHLORETHAMINE HYDROCHLORIDE
     Dosage: UNK, UNKNOWN
     Route: 061
     Dates: start: 2024, end: 2024
  5. MECHLORETHAMINE HYDROCHLORIDE [Suspect]
     Active Substance: MECHLORETHAMINE HYDROCHLORIDE
     Dosage: UNK, 2/WEEK
     Route: 061
     Dates: start: 2024
  6. PREDNISOLONE [Concomitant]
     Active Substance: PREDNISOLONE
     Indication: Skin exfoliation
     Dosage: 20 MILLIGRAM, QD
  7. PREDNISOLONE [Concomitant]
     Active Substance: PREDNISOLONE
     Indication: Cutaneous T-cell lymphoma
     Dosage: 4 TABLETS EVERY 24 HOURS, QD
  8. ISOTRETINOIN [Concomitant]
     Active Substance: ISOTRETINOIN
     Indication: Cutaneous T-cell lymphoma stage I
     Dosage: UNK, UNKNOWN

REACTIONS (17)
  - Dermatitis exfoliative generalised [Unknown]
  - Disease progression [Unknown]
  - Skin plaque [Unknown]
  - Skin lesion [Unknown]
  - Skin atrophy [Unknown]
  - Skin exfoliation [Unknown]
  - Pustule [Unknown]
  - Follicular disorder [Unknown]
  - Product prescribing issue [Unknown]
  - Off label use [Unknown]
  - Therapy cessation [Unknown]
  - Lymphadenopathy [Unknown]
  - Leukocytosis [Unknown]
  - Lymphocytosis [Unknown]
  - Skin infection [Recovering/Resolving]
  - Erythema [Unknown]
  - Application site erythema [Recovered/Resolved]

NARRATIVE: CASE EVENT DATE: 20230607
